FAERS Safety Report 9862458 (Version 2)
Quarter: 2014Q2

REPORT INFORMATION
  Report Type: Spontaneous
  Country: FR (occurrence: FR)
  Receive Date: 20140203
  Receipt Date: 20140422
  Transmission Date: 20141212
  Serious: Yes (Other)
  Sender: FDA-Public Use
  Company Number: FR-TEVA-458907ISR

PATIENT
  Sex: Female

DRUGS (1)
  1. LEELOO [Suspect]
     Indication: CONTRACEPTION

REACTIONS (2)
  - Haemorrhage [Recovered/Resolved]
  - Drug prescribing error [Unknown]
